FAERS Safety Report 5016980-X (Version None)
Quarter: 2006Q2

REPORT INFORMATION
  Report Type: 
  Country: None (occurrence: None)
  Receive Date: 20060526
  Receipt Date: 20060522
  Transmission Date: 20061013
  Serious: Yes (Other)
  Sender: FDA-Public Use
  Company Number: USA-2006-0024196

PATIENT
  Age: 55 Year
  Sex: Male

DRUGS (1)
  1. OXYCODONE HCL [Suspect]
     Dosage: ORAL
     Route: 048

REACTIONS (2)
  - HEPATITIS [None]
  - PHARMACEUTICAL PRODUCT COMPLAINT [None]
